FAERS Safety Report 15187546 (Version 1)
Quarter: 2018Q3

REPORT INFORMATION
  Report Type: Spontaneous
  Country: US (occurrence: US)
  Receive Date: 20180723
  Receipt Date: 20180723
  Transmission Date: 20181010
  Serious: No
  Sender: FDA-Public Use
  Company Number: US-BAUSCH-BL-2018-016288

PATIENT
  Age: 86 Year
  Sex: Female

DRUGS (1)
  1. OPCON?A [Suspect]
     Active Substance: NAPHAZOLINE HYDROCHLORIDE\PHENIRAMINE MALEATE
     Indication: EYE IRRITATION
     Dosage: ONE DROP IN EACH FOUR TIMES PER DAY
     Route: 047
     Dates: start: 20180604

REACTIONS (1)
  - Skin burning sensation [Not Recovered/Not Resolved]

NARRATIVE: CASE EVENT DATE: 20180605
